FAERS Safety Report 21666655 (Version 1)
Quarter: 2022Q4

REPORT INFORMATION
  Report Type: Spontaneous
  Country: DE (occurrence: DE)
  Receive Date: 20221201
  Receipt Date: 20221201
  Transmission Date: 20230113
  Serious: Yes (Other)
  Sender: FDA-Public Use
  Company Number: None

PATIENT
  Age: 56 Year
  Sex: Female
  Weight: 67 kg

DRUGS (1)
  1. TAMOXIFEN [Suspect]
     Active Substance: TAMOXIFEN
     Indication: Breast cancer female
     Dosage: UNIT DOSE : 20 MG , DURATION : 1 MONTH
     Dates: start: 202210, end: 20221106

REACTIONS (5)
  - Retinal degeneration [Recovered/Resolved]
  - Retinal tear [Recovered/Resolved]
  - Vitreous floaters [Unknown]
  - Vision blurred [Unknown]
  - Photopsia [Unknown]

NARRATIVE: CASE EVENT DATE: 20220101
